FAERS Safety Report 4343524-8 (Version None)
Quarter: 2004Q2

REPORT INFORMATION
  Report Type: 
  Country: None (occurrence: None)
  Receive Date: 20040419
  Receipt Date: 20040330
  Transmission Date: 20050107
  Serious: Yes (Hospitalization)
  Sender: FDA-Public Use
  Company Number: B0328368A

PATIENT
  Age: 42 Year
  Sex: Female

DRUGS (5)
  1. VALTREX [Suspect]
     Indication: HERPES ZOSTER
  2. ESTROVEN (FORMULATION UNKNOWN) (ESTROVEN) [Suspect]
  3. ACETAMINOPHEN [Concomitant]
  4. HYDROXYZINE [Concomitant]
  5. SUMATRIPTAN SUCCINATE [Concomitant]

REACTIONS (9)
  - ALANINE AMINOTRANSFERASE INCREASED [None]
  - ASPARTATE AMINOTRANSFERASE INCREASED [None]
  - CHILLS [None]
  - ERYTHEMA MULTIFORME [None]
  - EYE PRURITUS [None]
  - EYE REDNESS [None]
  - HEART RATE INCREASED [None]
  - MARKEDLY REDUCED DIETARY INTAKE [None]
  - MIGRAINE [None]
